FAERS Safety Report 15852425 (Version 2)
Quarter: 2019Q1

REPORT INFORMATION
  Report Type: Spontaneous
  Country: IT (occurrence: IT)
  Receive Date: 20190122
  Receipt Date: 20190206
  Transmission Date: 20190417
  Serious: Yes (Hospitalization, Other)
  Sender: FDA-Public Use
  Company Number: IT-AUROBINDO-AUR-APL-2019-002676

PATIENT

DRUGS (3)
  1. ARIPIPRAZOLE. [Suspect]
     Active Substance: ARIPIPRAZOLE
     Indication: SCHIZOPHRENIA
     Dosage: 20 MILLIGRAM, DAILY, 10 MG, BID
     Route: 065
  2. HALOPERIDOL DECANOATE. [Suspect]
     Active Substance: HALOPERIDOL DECANOATE
     Indication: SCHIZOPHRENIA
     Dosage: 150 MILLIGRAM 3 WEEK (LONG ACTING DEPOT THERAPY)
     Route: 030
  3. ARIPIPRAZOLE. [Suspect]
     Active Substance: ARIPIPRAZOLE
     Dosage: 10 MILLIGRAM, 0.5 DAY, ONCE A DAY
     Route: 065

REACTIONS (8)
  - Hypernatraemia [Recovered/Resolved]
  - Disease progression [Recovered/Resolved]
  - Lethargy [Unknown]
  - Central nervous system lesion [Recovered/Resolved]
  - Condition aggravated [Recovering/Resolving]
  - Hypertonia [Unknown]
  - Cerebral disorder [Recovered/Resolved]
  - Neuroleptic malignant syndrome [Recovered/Resolved]
